FAERS Safety Report 5422092-3 (Version None)
Quarter: 2007Q3

REPORT INFORMATION
  Report Type: 
  Country: None (occurrence: None)
  Receive Date: 20070822
  Receipt Date: 20070817
  Transmission Date: 20080115
  Serious: Yes (Death)
  Sender: FDA-Public Use
  Company Number: NSADSS2002000930

PATIENT
  Age: 57 Year
  Sex: Male

DRUGS (4)
  1. REOPRO [Suspect]
     Route: 041
  2. REOPRO [Suspect]
     Indication: ANGIOPLASTY
     Route: 041
  3. REOPRO [Suspect]
     Route: 040
  4. REOPRO [Suspect]
     Route: 040

REACTIONS (1)
  - MYOCARDIAL RUPTURE [None]
